FAERS Safety Report 5143903-5 (Version None)
Quarter: 2006Q4

REPORT INFORMATION
  Report Type: 
  Country: None (occurrence: None)
  Receive Date: 20061106
  Receipt Date: 20061016
  Transmission Date: 20070319
  Serious: Yes (Life-Threatening, Hospitalization)
  Sender: FDA-Public Use
  Company Number: NLWYE238216OCT06

PATIENT
  Sex: Female

DRUGS (18)
  1. ENBREL [Suspect]
     Indication: PSORIASIS
     Dates: start: 20041001, end: 20060901
  2. ENBREL [Suspect]
     Dosage: UNKNOWN
     Dates: start: 20061001
  3. SERETIDE [Concomitant]
     Dates: start: 20060529
  4. TRANXENE [Concomitant]
     Dates: start: 20060503
  5. UNKNOWN [Concomitant]
     Dosage: APPLY 1 TIME PER DAY
     Dates: start: 20060407, end: 20060721
  6. UNKNOWN [Concomitant]
     Dosage: APPLY 2 TIMES PER DAY
     Dates: start: 20060721, end: 20060914
  7. DIPROLENE [Concomitant]
     Dosage: APPLY 1 TIME PER DAY
     Dates: start: 20060407, end: 20060707
  8. KLACID [Concomitant]
     Dates: start: 20061002, end: 20061012
  9. TEMAZEPAM [Concomitant]
     Dates: start: 20060503
  10. CARBASALATE CALCIUM [Concomitant]
     Dates: start: 20060503, end: 20061013
  11. KETOCONAZOLE [Concomitant]
     Dosage: APPLY 2 TIMES PER DAY
     Dates: start: 20060721, end: 20060820
  12. CLINDAMYCIN [Concomitant]
     Dates: start: 20060919, end: 20060927
  13. CLINDAMYCIN [Concomitant]
     Dates: start: 20060928, end: 20061006
  14. BETADINE [Concomitant]
     Dosage: UNKNOWN
     Dates: start: 20060919
  15. ACETAMINOPHEN [Concomitant]
     Dosage: UNKNOWN
     Dates: start: 20060919
  16. PAROXETINE HCL [Concomitant]
     Dates: start: 20060503, end: 20061012
  17. PAROXETINE HCL [Concomitant]
     Dates: start: 20061013
  18. CETOMACROGOL 1000 [Concomitant]
     Dosage: APPLY 1 TIME PER DAY
     Dates: start: 20060407, end: 20060707

REACTIONS (4)
  - CORONARY ARTERY OCCLUSION [None]
  - HEART RATE INCREASED [None]
  - PYREXIA [None]
  - SKIN BACTERIAL INFECTION [None]
